FAERS Safety Report 20582339 (Version 1)
Quarter: 2022Q1

REPORT INFORMATION
  Report Type: Spontaneous
  Country: US (occurrence: None)
  Receive Date: 20220310
  Receipt Date: 20220310
  Transmission Date: 20220423
  Serious: Yes (Other)
  Sender: FDA-Public Use
  Company Number: None

PATIENT
  Age: 58 Year
  Sex: Male
  Weight: 80.74 kg

DRUGS (1)
  1. LONSURF [Suspect]
     Active Substance: TIPIRACIL HYDROCHLORIDE\TRIFLURIDINE
     Indication: Colon cancer
     Dosage: OTHER FREQUENCY : BID DAYS 1-5/8-12/;?
     Route: 048
     Dates: start: 20220211, end: 20220310

REACTIONS (1)
  - Disease progression [None]

NARRATIVE: CASE EVENT DATE: 20220310
